FAERS Safety Report 17216881 (Version 1)
Quarter: 2019Q4

REPORT INFORMATION
  Report Type: Report from Study
  Country: None (occurrence: BR)
  Receive Date: 20191231
  Receipt Date: 20191231
  Transmission Date: 20200122
  Serious: Yes (Other)
  Sender: FDA-Public Use
  Company Number: BR-ABBVIE-19P-020-3212586-00

PATIENT
  Weight: 61.5 kg

DRUGS (7)
  1. SONEBON [Concomitant]
     Indication: BIPOLAR DISORDER
     Route: 048
  2. DONAREN [Concomitant]
     Active Substance: TRAZODONE HYDROCHLORIDE
     Indication: ANXIETY
  3. SONEBON [Concomitant]
     Indication: SLEEP DISORDER THERAPY
  4. DEPAKOTE ER [Suspect]
     Active Substance: DIVALPROEX SODIUM
     Indication: DEPRESSION
     Dosage: DAILY DOSE: 1000MG; MORNING/NIGHT
     Route: 048
  5. DEPAKOTE ER [Suspect]
     Active Substance: DIVALPROEX SODIUM
     Indication: SEIZURE PROPHYLAXIS
  6. SONEBON [Concomitant]
     Indication: MENTAL DISORDER
  7. DONAREN [Concomitant]
     Active Substance: TRAZODONE HYDROCHLORIDE
     Indication: SLEEP DISORDER THERAPY
     Route: 048

REACTIONS (3)
  - Inappropriate schedule of product administration [Unknown]
  - Coronary arterial stent insertion [Unknown]
  - Metabolic surgery [Unknown]
